FAERS Safety Report 7395574-5 (Version None)
Quarter: 2011Q2

REPORT INFORMATION
  Report Type: 
  Country: None (occurrence: None)
  Receive Date: 20110405
  Receipt Date: 20110330
  Transmission Date: 20111010
  Serious: Yes (Hospitalization)
  Sender: FDA-Public Use
  Company Number: PHHY2010JP85310

PATIENT
  Sex: Male
  Weight: 57 kg

DRUGS (12)
  1. RASILEZ [Suspect]
     Indication: HYPERTENSION
     Dosage: 150 MG, QD
     Route: 048
     Dates: start: 20101002
  2. OLMETEC [Concomitant]
     Indication: HYPERTENSION
     Dosage: UNK
     Route: 048
  3. LIMAPROST [Concomitant]
  4. SLOW-K [Concomitant]
     Indication: HYPOKALAEMIA
     Dosage: UNK
     Route: 048
     Dates: end: 20101227
  5. NIFEDIPINE [Concomitant]
     Indication: HYPERTENSION
     Dosage: UNK
     Route: 048
  6. COMESGEN [Concomitant]
     Indication: NEUROPATHY PERIPHERAL
     Dosage: 1500 UNK, UNK
     Route: 048
  7. EPLERENONE [Concomitant]
     Indication: HYPERTENSION
     Dosage: UNK
  8. MIYA-BM [Concomitant]
     Indication: ENTEROCOLITIS
     Dosage: UNK
     Route: 048
  9. BAYCARON [Suspect]
     Indication: HYPERTENSION
     Dosage: 12.5 MG, UNK
     Route: 048
     Dates: end: 20101227
  10. DOXAZOSIN MESYLATE [Concomitant]
     Indication: HYPERTENSION
     Dosage: UNK
     Route: 048
  11. EPERISONE HYDROCHLORIDE [Concomitant]
  12. ATENOLOL [Concomitant]
     Indication: HYPERTENSION
     Dosage: UNK
     Route: 048

REACTIONS (2)
  - INTERSTITIAL LUNG DISEASE [None]
  - DYSPNOEA [None]
